FAERS Safety Report 25675786 (Version 1)
Quarter: 2025Q3

REPORT INFORMATION
  Report Type: Spontaneous
  Country: EU (occurrence: EU)
  Receive Date: 20250813
  Receipt Date: 20250813
  Transmission Date: 20251020
  Serious: Yes (Hospitalization, Disabling, Other)
  Sender: JOHNSON AND JOHNSON
  Company Number: None

PATIENT
  Age: 72 Year
  Sex: Male
  Weight: 72 kg

DRUGS (2)
  1. DARZALEX [Suspect]
     Active Substance: DARATUMUMAB
     Indication: Plasma cell myeloma
     Route: 058
     Dates: start: 20210717, end: 20250602
  2. LENALIDOMIDE HYDROCHLORIDE HYDRATE [Suspect]
     Active Substance: LENALIDOMIDE HYDROCHLORIDE HYDRATE
     Indication: Plasma cell myeloma
     Route: 048
     Dates: start: 20210719, end: 20250619

REACTIONS (1)
  - Epstein-Barr virus associated lymphoma [Not Recovered/Not Resolved]

NARRATIVE: CASE EVENT DATE: 20250801
